FAERS Safety Report 19600747 (Version 1)
Quarter: 2021Q3

REPORT INFORMATION
  Report Type: Spontaneous
  Country: US (occurrence: US)
  Receive Date: 20210723
  Receipt Date: 20210723
  Transmission Date: 20211014
  Serious: Yes (Other)
  Sender: FDA-Public Use
  Company Number: US-TEVA-2021-US-1935314

PATIENT
  Sex: Female

DRUGS (1)
  1. METOPROLOL SUCCINATE TEVA [Suspect]
     Active Substance: METOPROLOL SUCCINATE
     Route: 065

REACTIONS (7)
  - Seasonal allergy [Unknown]
  - Palpitations [Unknown]
  - Eye pruritus [Unknown]
  - Throat tightness [Unknown]
  - Anaphylactic shock [Unknown]
  - Cough [Unknown]
  - Flushing [Unknown]
